FAERS Safety Report 9219674 (Version 1)
Quarter: 2013Q2

REPORT INFORMATION
  Report Type: Spontaneous
  Country: US (occurrence: None)
  Receive Date: 20130408
  Receipt Date: 20130408
  Transmission Date: 20140414
  Serious: Yes (Hospitalization)
  Sender: FDA-Public Use
  Company Number: None

PATIENT
  Age: 52 Year
  Sex: Male
  Weight: 57 kg

DRUGS (1)
  1. LISINOPRIL 10 MG [Suspect]
     Route: 048
     Dates: end: 20130209

REACTIONS (2)
  - Anaphylactic reaction [None]
  - Angioedema [None]
